FAERS Safety Report 6235340-7 (Version None)
Quarter: 2009Q2

REPORT INFORMATION
  Report Type: 
  Country: None (occurrence: None)
  Receive Date: 20090615
  Receipt Date: 20090610
  Transmission Date: 20091009
  Serious: Yes (Hospitalization)
  Sender: FDA-Public Use
  Company Number: 2009SP012592

PATIENT
  Age: 58 Year
  Sex: Female

DRUGS (8)
  1. NOXAFIL [Suspect]
     Indication: DRUG USE FOR UNKNOWN INDICATION
     Dosage: 200 MG; TID; PO
     Route: 048
     Dates: start: 20081129, end: 20090224
  2. DOXORUBICINE (DOXORUBICINE HYDROCHLORIDE) [Suspect]
     Indication: T-CELL LYMPHOMA
     Dosage: 450 MG/M2; IV
     Route: 042
     Dates: start: 20080301, end: 20080701
  3. NEORAL (CON.) [Concomitant]
  4. ZELITREX (CON.) [Concomitant]
  5. DIFFU K (CON.) [Concomitant]
  6. INEXIUM (CON.) [Concomitant]
  7. SPECIAFOLDINE (CON.) [Concomitant]
  8. MAGNE B6 (CON.)C [Concomitant]

REACTIONS (4)
  - ACUTE PULMONARY OEDEMA [None]
  - ATRIAL FIBRILLATION [None]
  - CARDIAC FAILURE CONGESTIVE [None]
  - CARDIOTOXICITY [None]
